FAERS Safety Report 6472348-0 (Version None)
Quarter: 2009Q4

REPORT INFORMATION
  Report Type: 
  Country: None (occurrence: None)
  Receive Date: 20091119
  Receipt Date: 20091002
  Transmission Date: 20100525
  Serious: No
  Sender: FDA-Public Use
  Company Number: WAES 0910USA00381

PATIENT
  Age: 64 Year
  Sex: Female
  Weight: 94.8018 kg

DRUGS (10)
  1. JANUVIA [Suspect]
     Dosage: 50 MG/DAILY/PO, 100MG/DAILY/PO
     Route: 048
  2. GLUCOTROL XL [Concomitant]
  3. NITROGLYCERIN [Concomitant]
  4. TRIAC [Concomitant]
  5. VYTORIN [Concomitant]
  6. FUROSEMIDE [Concomitant]
  7. LISINOPRIL [Concomitant]
  8. METOPROLOL [Concomitant]
  9. OMEPRAZOLE [Concomitant]
  10. SIMVASTATIN [Concomitant]

REACTIONS (1)
  - HEADACHE [None]
